FAERS Safety Report 18402906 (Version 5)
Quarter: 2021Q1

REPORT INFORMATION
  Report Type: Spontaneous
  Country: US (occurrence: US)
  Receive Date: 20201019
  Receipt Date: 20210317
  Transmission Date: 20210419
  Serious: Yes (Hospitalization)
  Sender: FDA-Public Use
  Company Number: US-VIFOR (INTERNATIONAL) INC.-VIT-2020-10289

PATIENT
  Age: 83 Year
  Sex: Female

DRUGS (1)
  1. VELTASSA [Suspect]
     Active Substance: PATIROMER
     Indication: HYPERKALAEMIA
     Route: 048
     Dates: start: 20200730

REACTIONS (7)
  - Eating disorder [Unknown]
  - Atrial fibrillation [Unknown]
  - Weight decreased [Unknown]
  - Hospitalisation [Unknown]
  - Catheter site infection [Not Recovered/Not Resolved]
  - Product dose omission issue [Unknown]
  - Cardiac arrest [Not Recovered/Not Resolved]

NARRATIVE: CASE EVENT DATE: 2020
